FAERS Safety Report 10355323 (Version 1)
Quarter: 2014Q3

REPORT INFORMATION
  Report Type: Spontaneous
  Country: US (occurrence: None)
  Receive Date: 20140729
  Receipt Date: 20140729
  Transmission Date: 20150326
  Serious: Yes (Hospitalization)
  Sender: FDA-Public Use
  Company Number: US-001065

PATIENT
  Age: 29 Year
  Sex: Male
  Weight: 47.4 kg

DRUGS (10)
  1. TRAZODONE [Concomitant]
     Active Substance: TRAZODONE HYDROCHLORIDE
  2. ERGOCALCIFEROL. [Concomitant]
     Active Substance: ERGOCALCIFEROL
  3. XARELTO [Concomitant]
     Active Substance: RIVAROXABAN
  4. URSODIOL. [Concomitant]
     Active Substance: URSODIOL
  5. ZYPREXA [Concomitant]
     Active Substance: OLANZAPINE
  6. IMODIUM [Concomitant]
     Active Substance: LOPERAMIDE HYDROCHLORIDE
  7. GATTEX [Suspect]
     Active Substance: TEDUGLUTIDE\WATER
     Indication: SHORT-BOWEL SYNDROME
     Route: 058
     Dates: start: 20140407, end: 20140511
  8. PEPTAMEN [Concomitant]
  9. OLANZAPINE. [Concomitant]
     Active Substance: OLANZAPINE
  10. BENZETROPINE [Concomitant]

REACTIONS (3)
  - Vomiting [None]
  - Small intestinal obstruction [None]
  - Nausea [None]

NARRATIVE: CASE EVENT DATE: 201405
